FAERS Safety Report 20095757 (Version 1)
Quarter: 2021Q4

REPORT INFORMATION
  Report Type: Spontaneous
  Country: GB (occurrence: GB)
  Receive Date: 20211122
  Receipt Date: 20211122
  Transmission Date: 20220303
  Serious: Yes (Hospitalization, Other)
  Sender: FDA-Public Use
  Company Number: GB-KVK-TECH, INC-20211100164

PATIENT

DRUGS (1)
  1. INDOMETHACIN [Suspect]
     Active Substance: INDOMETHACIN
     Indication: Back pain
     Dosage: UNKNOWN DOSE, DAILY

REACTIONS (1)
  - Pharyngeal haematoma [Recovered/Resolved]
